FAERS Safety Report 9120682 (Version 4)
Quarter: 2015Q4

REPORT INFORMATION
  Report Type: Spontaneous
  Country: NO (occurrence: NO)
  Receive Date: 20130226
  Receipt Date: 20151126
  Transmission Date: 20160305
  Serious: Yes (Other)
  Sender: FDA-Public Use
  Company Number: NO-AMGEN-NORSP2013010885

PATIENT
  Age: 63 Year
  Sex: Male

DRUGS (3)
  1. ERBITUX [Suspect]
     Active Substance: CETUXIMAB
     Indication: NEURALGIA
     Dosage: UNK
     Route: 042
  2. PREGABALIN. [Concomitant]
     Active Substance: PREGABALIN
     Indication: NEURALGIA
     Dosage: 75 MG, TWICE DAILY
  3. PANITUMUMAB [Suspect]
     Active Substance: PANITUMUMAB
     Indication: NEURALGIA
     Dosage: 6 MG KG^-1
     Route: 042

REACTIONS (5)
  - Iridocyclitis [Recovered/Resolved]
  - Uveitis [Recovered/Resolved]
  - Dermatitis acneiform [Recovering/Resolving]
  - Off label use [Unknown]
  - Dry skin [Unknown]
